FAERS Safety Report 19056177 (Version 1)
Quarter: 2021Q1

REPORT INFORMATION
  Report Type: Spontaneous
  Country: US (occurrence: US)
  Receive Date: 20210324
  Receipt Date: 20210324
  Transmission Date: 20210420
  Serious: No
  Sender: FDA-Public Use
  Company Number: US-NEXGEN PHARMA, INC.-2108407

PATIENT
  Age: 18 Year
  Sex: Male

DRUGS (1)
  1. CHENODAL [Suspect]
     Active Substance: CHENODIOL
     Indication: LIPID METABOLISM DISORDER
     Route: 048
     Dates: start: 20210228

REACTIONS (6)
  - Haematochezia [Unknown]
  - Epistaxis [Unknown]
  - Burning sensation [Unknown]
  - Autism spectrum disorder [Unknown]
  - Liver function test decreased [Unknown]
  - Abnormal behaviour [Recovering/Resolving]
